FAERS Safety Report 11962214 (Version 1)
Quarter: 2016Q1

REPORT INFORMATION
  Report Type: Spontaneous
  Country: US (occurrence: US)
  Receive Date: 20160126
  Receipt Date: 20160126
  Transmission Date: 20160526
  Serious: Yes (Life-Threatening, Hospitalization, Other)
  Sender: FDA-Public Use
  Company Number: US-ACTAVIS-2016-01223

PATIENT
  Age: 38 Month
  Sex: Female

DRUGS (3)
  1. METHYLDOPA (UNKNOWN) [Suspect]
     Active Substance: METHYLDOPA
     Indication: ACCIDENTAL EXPOSURE TO PRODUCT BY CHILD
     Dosage: UNKNOWN
     Route: 048
  2. CLONIDINE. [Suspect]
     Active Substance: CLONIDINE
     Indication: ACCIDENTAL EXPOSURE TO PRODUCT BY CHILD
     Dosage: UNKNOWN
     Route: 048
  3. TOLAZAMIDE (WATSON LABORATORIES) [Suspect]
     Active Substance: TOLAZAMIDE
     Indication: ACCIDENTAL EXPOSURE TO PRODUCT BY CHILD
     Dosage: UNKNOWN
     Route: 048

REACTIONS (7)
  - Apnoea [Recovered/Resolved]
  - Miosis [Recovered/Resolved]
  - Hyporeflexia [Recovered/Resolved]
  - Wrong drug administered [None]
  - Arrhythmia [Recovered/Resolved]
  - Coma [Recovered/Resolved]
  - Accidental exposure to product by child [Recovered/Resolved]
